FAERS Safety Report 5686915-5 (Version None)
Quarter: 2008Q1

REPORT INFORMATION
  Report Type: 
  Country: None (occurrence: None)
  Receive Date: 20080328
  Receipt Date: 20070611
  Transmission Date: 20080703
  Serious: No
  Sender: FDA-Public Use
  Company Number: US-BAYER-US-2007-021807

PATIENT
  Age: 40 Year
  Sex: Female
  Weight: 65 kg

DRUGS (4)
  1. MIRENA [Suspect]
     Route: 015
     Dates: start: 20060404, end: 20060731
  2. WELLBUTRIN [Concomitant]
  3. VITAMIN CAP [Concomitant]
  4. DIOVAN [Concomitant]

REACTIONS (2)
  - INTRA-UTERINE CONTRACEPTIVE DEVICE EXPELLED [None]
  - MENORRHAGIA [None]
